FAERS Safety Report 7042228-0 (Version None)
Quarter: 2010Q4

REPORT INFORMATION
  Report Type: 
  Country: None (occurrence: None)
  Receive Date: 20101013
  Receipt Date: 20100929
  Transmission Date: 20110411
  Serious: Yes (Death, Hospitalization)
  Sender: FDA-Public Use
  Company Number: GB-WATSON-2010-13414

PATIENT
  Age: 75 Year
  Sex: Female

DRUGS (5)
  1. LISINOPRIL (WATSON LABORATORIES) [Suspect]
     Indication: HYPERTENSION
     Dosage: UNK
     Route: 048
     Dates: start: 20020301
  2. QUININE SULFATE (WATSON LABORATORIES) [Suspect]
     Indication: MUSCLE SPASMS
     Dosage: UNK
  3. LEFLUNOMIDE [Suspect]
     Indication: RHEUMATOID ARTHRITIS
     Dosage: 20 MG, DAILY
     Route: 048
     Dates: start: 20020301
  4. LEFLUNOMIDE [Suspect]
     Dosage: 20 MG, DAILY
     Route: 048
  5. PROPOFOL [Suspect]
     Indication: ANAESTHESIA
     Dosage: UNK

REACTIONS (5)
  - COAGULOPATHY [None]
  - HEPATIC FAILURE [None]
  - HYPOVOLAEMIA [None]
  - LABILE BLOOD PRESSURE [None]
  - RENAL FAILURE [None]
